FAERS Safety Report 5123363-0 (Version None)
Quarter: 2006Q4

REPORT INFORMATION
  Report Type: 
  Country: None (occurrence: None)
  Receive Date: 20061005
  Receipt Date: 20060926
  Transmission Date: 20070319
  Serious: No
  Sender: FDA-Public Use
  Company Number: 06H-087-0310392-00

PATIENT
  Age: 37 Year
  Sex: Female
  Weight: 55.9 kg

DRUGS (20)
  1. PRECEDEX [Suspect]
     Dosage: 0.2-0.3  MCG/KG/HR, NOT REPORTED, INTRAVENOUS
     Route: 042
     Dates: start: 20060131, end: 20060201
  2. FENTANYL CITRATE [Concomitant]
  3. MIDAZOLAM HCL [Concomitant]
  4. PANCURONIUM BROMIDE [Concomitant]
  5. SENEGA (SENEGA) [Concomitant]
  6. APRICOT KERNEL [Concomitant]
  7. CLARITHROMYCIN [Concomitant]
  8. FERROUS CITRATE [Concomitant]
  9. SODIUM AZULENE SULFONATE [Concomitant]
  10. TORSEMIDE [Concomitant]
  11. ASPIRIN [Concomitant]
  12. METHYLDIGOXIN [Concomitant]
  13. DISOPYRAMIDE [Concomitant]
  14. CIPRALAN [Concomitant]
  15. PILSICAINIDE HYDROCHLORIDE (PILSICAINIDE HYDROCHLORIDE) [Concomitant]
  16. WARFARIN SODIUM [Concomitant]
  17. CEFOTIAM HYDROCHLORIDE [Concomitant]
  18. PIPERACILLIN SODIUM [Concomitant]
  19. FAMOTIDINE [Concomitant]
  20. FUROSEMIDE [Concomitant]

REACTIONS (3)
  - CARDIAC OUTPUT DECREASED [None]
  - HYPERTENSION [None]
  - POST PROCEDURAL COMPLICATION [None]
